FAERS Safety Report 8535303-2 (Version None)
Quarter: 2012Q3

REPORT INFORMATION
  Report Type: 
  Country: None (occurrence: None)
  Receive Date: 20120725
  Receipt Date: 20120719
  Transmission Date: 20120928
  Serious: Yes (Other)
  Sender: FDA-Public Use
  Company Number: US-BIOGENIDEC-2012BI026308

PATIENT
  Age: 58 Year
  Sex: Female

DRUGS (1)
  1. AVONEX [Suspect]
     Indication: MULTIPLE SCLEROSIS
     Route: 030
     Dates: start: 20040601

REACTIONS (5)
  - MYOCARDIAL INFARCTION [None]
  - INSOMNIA [None]
  - ANXIETY [None]
  - HYPOTHYROIDISM [None]
  - URINARY RETENTION [None]
